FAERS Safety Report 4474859-6 (Version None)
Quarter: 2004Q4

REPORT INFORMATION
  Report Type: 
  Country: None (occurrence: None)
  Receive Date: 20041012
  Receipt Date: 20040930
  Transmission Date: 20050328
  Serious: Yes (Other)
  Sender: FDA-Public Use
  Company Number: 209426

PATIENT
  Age: 54 Year
  Sex: Male

DRUGS (1)
  1. RITUXAN [Suspect]
     Indication: MANTLE CELL LYMPHOMA
     Dosage: 600 MG, INTRAVENOUS
     Route: 042

REACTIONS (5)
  - ANAPHYLACTIC REACTION [None]
  - DISEASE RECURRENCE [None]
  - LYMPHOMA [None]
  - MALAISE [None]
  - SPLENOMEGALY [None]
